FAERS Safety Report 13023462 (Version 1)
Quarter: 2016Q4

REPORT INFORMATION
  Report Type: Spontaneous
  Country: US (occurrence: US)
  Receive Date: 20161213
  Receipt Date: 20161213
  Transmission Date: 20170207
  Serious: No
  Sender: FDA-Public Use
  Company Number: US-TEVA-719717USA

PATIENT
  Sex: Female

DRUGS (4)
  1. TECFIDERA [Suspect]
     Active Substance: DIMETHYL FUMARATE
     Route: 065
  2. TYSABRI [Suspect]
     Active Substance: NATALIZUMAB
     Route: 065
  3. REBIF [Suspect]
     Active Substance: INTERFERON BETA-1A
     Route: 065
  4. COPAXONE [Suspect]
     Active Substance: GLATIRAMER ACETATE
     Indication: MULTIPLE SCLEROSIS
     Dosage: UNKNOWN FORM STRENGTH
     Route: 065

REACTIONS (5)
  - Flushing [Unknown]
  - Nausea [Unknown]
  - Viral test positive [Unknown]
  - Abdominal pain upper [Unknown]
  - Drug effect decreased [Unknown]
